FAERS Safety Report 5355173-3 (Version None)
Quarter: 2007Q2

REPORT INFORMATION
  Report Type: 
  Country: None (occurrence: None)
  Receive Date: 20070611
  Receipt Date: 20070531
  Transmission Date: 20071010
  Serious: Yes (Hospitalization)
  Sender: FDA-Public Use
  Company Number: 2007AP000579

PATIENT
  Age: 38 Year
  Sex: Female

DRUGS (3)
  1. PAROXETINE HCL [Suspect]
     Dosage: 1.8 GM; 1X UNKNOWN
  2. TEMAZEPAM [Suspect]
     Dosage: 280 MG; 1X UNKNOWN
  3. DIPHENHYDRAMINE HCL [Suspect]
     Dosage: 400 MG; 1X UNKNOWN

REACTIONS (8)
  - ELECTROCARDIOGRAM QT PROLONGED [None]
  - GRAND MAL CONVULSION [None]
  - HYPERREFLEXIA [None]
  - HYPERTENSIVE CRISIS [None]
  - MULTIPLE DRUG OVERDOSE [None]
  - OBSTRUCTIVE AIRWAYS DISORDER [None]
  - SEROTONIN SYNDROME [None]
  - TACHYCARDIA [None]
